FAERS Safety Report 11494438 (Version 2)
Quarter: 2015Q4

REPORT INFORMATION
  Report Type: Report from Study
  Country: AU (occurrence: AU)
  Receive Date: 20150911
  Receipt Date: 20151002
  Transmission Date: 20160304
  Serious: Yes (Hospitalization)
  Sender: FDA-Public Use
  Company Number: PHHY2015AU107781

PATIENT
  Sex: Male

DRUGS (2)
  1. CLOZARIL [Suspect]
     Active Substance: CLOZAPINE
     Indication: SCHIZOPHRENIA
     Dosage: UNK
     Route: 048
     Dates: start: 20140918, end: 20150902
  2. CLOZARIL [Suspect]
     Active Substance: CLOZAPINE
     Dosage: 25 MG, BID
     Route: 048
     Dates: start: 20150904, end: 20150929

REACTIONS (5)
  - Pyrexia [Unknown]
  - Tremor [Unknown]
  - Malaise [Unknown]
  - Infection [Unknown]
  - Blood creatine phosphokinase increased [Unknown]
